FAERS Safety Report 7045560-X (Version None)
Quarter: 2010Q4

REPORT INFORMATION
  Report Type: 
  Country: None (occurrence: None)
  Receive Date: 20101014
  Receipt Date: 20101004
  Transmission Date: 20110411
  Serious: Yes (Disabling)
  Sender: FDA-Public Use
  Company Number: NL-ROCHE-730589

PATIENT
  Age: 56 Year
  Sex: Male

DRUGS (4)
  1. XELODA [Suspect]
     Route: 048
     Dates: start: 20090101
  2. XELODA [Suspect]
     Route: 048
     Dates: start: 20100922
  3. OXALIPLATIN [Suspect]
     Route: 042
     Dates: start: 20100922
  4. OXALIPLATIN [Suspect]
     Route: 042
     Dates: start: 20090101

REACTIONS (1)
  - KERATITIS [None]
